FAERS Safety Report 8505556-5 (Version None)
Quarter: 2012Q3

REPORT INFORMATION
  Report Type: 
  Country: None (occurrence: None)
  Receive Date: 20120703
  Receipt Date: 20120626
  Transmission Date: 20120928
  Serious: Yes (Hospitalization)
  Sender: FDA-Public Use
  Company Number: WAES 1206ESP00035

PATIENT
  Age: 72 Year
  Sex: Female

DRUGS (2)
  1. FOSAMAX [Suspect]
     Indication: OSTEOPOROSIS
     Dosage: PO
     Route: 048
  2. ACENOCOUMAROL [Concomitant]

REACTIONS (4)
  - IMPAIRED HEALING [None]
  - FATIGUE [None]
  - ATYPICAL FEMUR FRACTURE [None]
  - PSEUDARTHROSIS [None]
